FAERS Safety Report 4373997-6 (Version None)
Quarter: 2004Q2

REPORT INFORMATION
  Report Type: 
  Country: None (occurrence: None)
  Receive Date: 20040601
  Receipt Date: 20040204
  Transmission Date: 20050107
  Serious: No
  Sender: FDA-Public Use
  Company Number: MPS1-10164

PATIENT
  Age: 4 Year
  Sex: Female

DRUGS (3)
  1. ALDURAZYME [Suspect]
     Indication: MUCOPOLYSACCHARIDOSIS I
     Dosage: 11.55 MG QWK IV
     Route: 042
     Dates: start: 20031007
  2. ATARAX [Concomitant]
  3. TYLENOL [Concomitant]

REACTIONS (8)
  - CHILLS [None]
  - DEHYDRATION [None]
  - DIARRHOEA [None]
  - PALLOR [None]
  - PYREXIA [None]
  - UPPER RESPIRATORY TRACT INFECTION [None]
  - URTICARIA [None]
  - VOMITING [None]
